FAERS Safety Report 7656753-2 (Version None)
Quarter: 2011Q3

REPORT INFORMATION
  Report Type: 
  Country: None (occurrence: None)
  Receive Date: 20110804
  Receipt Date: 20110802
  Transmission Date: 20111222
  Serious: Yes (Other)
  Sender: FDA-Public Use
  Company Number: US-PFIZER INC-2011176658

PATIENT
  Sex: Female
  Weight: 100 kg

DRUGS (8)
  1. ZOLOFT [Concomitant]
     Indication: BIPOLAR DISORDER
     Dosage: 100 MG, DAILY
  2. PRAVASTATIN SODIUM [Concomitant]
     Dosage: 40 MG, DAILY
  3. ZOLOFT [Concomitant]
     Indication: DEPRESSION
  4. MULTI-VITAMINS [Concomitant]
     Dosage: DAILY
  5. ACETYLSALICYLIC ACID [Concomitant]
     Dosage: 81 MG, DAILY
  6. CHANTIX [Suspect]
     Indication: SMOKING CESSATION THERAPY
     Dosage: UNK
     Route: 048
     Dates: start: 20110501
  7. LISINOPRIL [Concomitant]
     Dosage: 10 MG, DAILY
  8. FISH OIL [Concomitant]
     Dosage: DAILY

REACTIONS (3)
  - DIABETES MELLITUS [None]
  - HYPERTENSION [None]
  - BLOOD CHOLESTEROL INCREASED [None]
